FAERS Safety Report 17924711 (Version 3)
Quarter: 2020Q4

REPORT INFORMATION
  Report Type: Other
  Country: US (occurrence: US)
  Receive Date: 20200622
  Receipt Date: 20201221
  Transmission Date: 20210113
  Serious: No
  Sender: FDA-Public Use
  Company Number: US-ACORDA-ACO_164989_2020

PATIENT
  Sex: Female

DRUGS (3)
  1. RYTARY [Concomitant]
     Active Substance: CARBIDOPA\LEVODOPA
     Indication: PRODUCT USED FOR UNKNOWN INDICATION
     Dosage: UNK
     Route: 065
  2. INBRIJA [Suspect]
     Active Substance: LEVODOPA
     Indication: PARKINSON^S DISEASE
     Dosage: 84 MILLIGRAM, PRN (ALSO: 2 CAPSULES TID PRN), NOT TO EXCEED 5 DOSES A DAY
     Dates: start: 20190730
  3. INBRIJA [Suspect]
     Active Substance: LEVODOPA
     Indication: ON AND OFF PHENOMENON

REACTIONS (8)
  - Device issue [Unknown]
  - Drug ineffective [Unknown]
  - Treatment noncompliance [Recovered/Resolved]
  - Pain in extremity [Not Recovered/Not Resolved]
  - Hypokinesia [Unknown]
  - Feeling cold [Unknown]
  - Back pain [Not Recovered/Not Resolved]
  - Condition aggravated [Not Recovered/Not Resolved]
